FAERS Safety Report 20744881 (Version 4)
Quarter: 2022Q4

REPORT INFORMATION
  Report Type: Spontaneous
  Country: US (occurrence: US)
  Receive Date: 20220425
  Receipt Date: 20221011
  Transmission Date: 20230113
  Serious: No
  Sender: FDA-Public Use
  Company Number: US-AMGEN-USASP2022064640

PATIENT
  Age: 67 Year
  Sex: Female

DRUGS (2)
  1. REPATHA [Suspect]
     Active Substance: EVOLOCUMAB
     Indication: Blood cholesterol increased
     Dosage: 420 MILLIGRAM, QMO
     Route: 058
     Dates: start: 20181127
  2. REPATHA [Suspect]
     Active Substance: EVOLOCUMAB
     Indication: Hyperlipidaemia
     Dosage: 420 MILLIGRAM, QMO
     Route: 058
     Dates: end: 20220801

REACTIONS (5)
  - Device difficult to use [Unknown]
  - Wrong technique in product usage process [Unknown]
  - Musculoskeletal stiffness [Recovering/Resolving]
  - Gait disturbance [Recovering/Resolving]
  - Myalgia [Recovering/Resolving]

NARRATIVE: CASE EVENT DATE: 20220101
